FAERS Safety Report 24681976 (Version 3)
Quarter: 2025Q2

REPORT INFORMATION
  Report Type: Spontaneous
  Country: FR (occurrence: FR)
  Receive Date: 20241130
  Receipt Date: 20250612
  Transmission Date: 20250717
  Serious: Yes (Death, Other)
  Sender: ALEXION PHARMACEUTICALS
  Company Number: FR-AstraZeneca-CH-00752945A

PATIENT
  Age: 29 Year

DRUGS (1)
  1. ANIFROLUMAB [Suspect]
     Active Substance: ANIFROLUMAB
     Indication: Interferonopathy

REACTIONS (3)
  - Death [Fatal]
  - Off label use [Unknown]
  - Infection [Unknown]
